FAERS Safety Report 7718020-8 (Version None)
Quarter: 2011Q3

REPORT INFORMATION
  Report Type: 
  Country: None (occurrence: None)
  Receive Date: 20110830
  Receipt Date: 20110822
  Transmission Date: 20111222
  Serious: Yes (Hospitalization)
  Sender: FDA-Public Use
  Company Number: US-GILEAD-2011-0042589

PATIENT
  Sex: Female
  Weight: 85.73 kg

DRUGS (13)
  1. REVATIO [Concomitant]
     Indication: PULMONARY ARTERIAL HYPERTENSION
  2. COMBIVENT [Concomitant]
     Indication: BRONCHOSPASM
  3. REMODULIN [Concomitant]
     Indication: PULMONARY ARTERIAL HYPERTENSION
  4. FUROSEMIDE [Concomitant]
     Indication: CARDIAC FAILURE ACUTE
  5. METOCLOPRAMIDE [Concomitant]
     Indication: NAUSEA
  6. LETAIRIS [Suspect]
     Indication: PULMONARY HYPERTENSION
     Route: 048
     Dates: start: 20110117
  7. DIGOXIN [Concomitant]
     Indication: CARDIAC FAILURE CHRONIC
  8. ALPRAZOLAM [Concomitant]
     Indication: INSOMNIA
  9. OXYCODONE HCL [Concomitant]
  10. POTASSIUM CHLORIDE [Concomitant]
     Indication: HYPOKALAEMIA
  11. LOPERAMIDE HCL [Concomitant]
     Indication: DIARRHOEA
  12. FERROUS GLUCONATE [Concomitant]
     Indication: IRON DEFICIENCY ANAEMIA
  13. SERTRALINE HYDROCHLORIDE [Concomitant]
     Indication: DEPRESSION

REACTIONS (2)
  - FLUID RETENTION [None]
  - INFECTION [None]
